FAERS Safety Report 4308046-9 (Version None)
Quarter: 2004Q1

REPORT INFORMATION
  Report Type: 
  Country: None (occurrence: None)
  Receive Date: 20040301
  Receipt Date: 20030410
  Transmission Date: 20041129
  Serious: No
  Sender: FDA-Public Use
  Company Number: US-BRISTOL-MYERS SQUIBB COMPANY-12237053

PATIENT
  Age: 61 Year
  Sex: Female

DRUGS (13)
  1. GLUCOPHAGE [Suspect]
     Indication: DIABETES MELLITUS
     Route: 048
     Dates: start: 20020101
  2. TOPROL-XL [Concomitant]
  3. HYDROCHLOROTHIAZIDE [Concomitant]
  4. CLONAZEPAM [Concomitant]
  5. VASOTEC [Concomitant]
  6. ZANTAC [Concomitant]
  7. ASPIRIN [Concomitant]
  8. AMARYL [Concomitant]
  9. MICRO-K [Concomitant]
  10. VITAMIN CAP [Concomitant]
  11. EXTRA STRENGTH TYLENOL [Concomitant]
  12. MAALOX [Concomitant]
  13. TUMS [Concomitant]

REACTIONS (2)
  - BLOOD GLUCOSE INCREASED [None]
  - DYSPEPSIA [None]
